FAERS Safety Report 5949909-8 (Version None)
Quarter: 2008Q4

REPORT INFORMATION
  Report Type: 
  Country: None (occurrence: None)
  Receive Date: 20081112
  Receipt Date: 20081029
  Transmission Date: 20090506
  Serious: Yes (Hospitalization)
  Sender: FDA-Public Use
  Company Number: CA-ELI_LILLY_AND_COMPANY-CA200810007392

PATIENT
  Age: 23 Year
  Sex: Female

DRUGS (4)
  1. ZYPREXA [Suspect]
     Dosage: 15 MG, UNK
  2. EPIVAL [Concomitant]
  3. RISPERDAL CONSTA [Concomitant]
  4. INSULIN [Concomitant]
     Indication: DIABETES MELLITUS

REACTIONS (5)
  - DIABETES MELLITUS [None]
  - DRUG EXPOSURE DURING PREGNANCY [None]
  - GESTATIONAL DIABETES [None]
  - HOSPITALISATION [None]
  - PREGNANCY [None]
